FAERS Safety Report 10038306 (Version 1)
Quarter: 2014Q1

REPORT INFORMATION
  Report Type: Spontaneous
  Country: CA (occurrence: CA)
  Receive Date: 20140326
  Receipt Date: 20140326
  Transmission Date: 20141002
  Serious: Yes (Death, Other)
  Sender: FDA-Public Use
  Company Number: PHHY2014CA032782

PATIENT
  Age: 74 Year
  Sex: Female

DRUGS (4)
  1. MIRTAZAPINE [Suspect]
     Indication: DEPRESSION
     Dosage: 30 MG, DAILY
  2. MORPHINE [Suspect]
     Indication: PAIN
     Dosage: 30 MG, Q4H
  3. FUROSEMIDE [Suspect]
     Indication: OEDEMA PERIPHERAL
     Dosage: 40 MG, DAILY
  4. DIMENHYDRINATE [Suspect]
     Indication: VOMITING
     Dosage: 50 MG, Q4H

REACTIONS (17)
  - Myocardial infarction [Fatal]
  - Colonic pseudo-obstruction [Unknown]
  - Intestinal obstruction [Unknown]
  - Abdominal distension [Unknown]
  - Vomiting [Unknown]
  - Nausea [Unknown]
  - Constipation [Unknown]
  - Cognitive disorder [Unknown]
  - Urinary retention [Unknown]
  - Abnormal behaviour [Unknown]
  - Delirium [Unknown]
  - Altered state of consciousness [Unknown]
  - Abdominal discomfort [Unknown]
  - Gastrointestinal sounds abnormal [Unknown]
  - Hypokinesia [Unknown]
  - Somnolence [Unknown]
  - Mutism [Unknown]
